FAERS Safety Report 21546389 (Version 2)
Quarter: 2022Q4

REPORT INFORMATION
  Report Type: Spontaneous
  Country: US (occurrence: US)
  Receive Date: 20221103
  Receipt Date: 20221125
  Transmission Date: 20230113
  Serious: No
  Sender: FDA-Public Use
  Company Number: US-PFIZER INC-PV202200082037

PATIENT
  Age: 14 Year
  Sex: Male

DRUGS (1)
  1. GENOTROPIN [Suspect]
     Active Substance: SOMATROPIN
     Dosage: 2 MG

REACTIONS (6)
  - Injection site pain [Unknown]
  - Device mechanical issue [Unknown]
  - Device difficult to use [Unknown]
  - Needle issue [Unknown]
  - Poor quality device used [Unknown]
  - Incorrect dose administered by device [Unknown]
